FAERS Safety Report 4642042-7 (Version None)
Quarter: 2005Q2

REPORT INFORMATION
  Report Type: 
  Country: None (occurrence: None)
  Receive Date: 20050420
  Receipt Date: 20050412
  Transmission Date: 20051028
  Serious: Yes (Hospitalization, Other)
  Sender: FDA-Public Use
  Company Number: 2005057726

PATIENT
  Age: 58 Year
  Sex: Female

DRUGS (1)
  1. XANAX [Suspect]
     Indication: ILL-DEFINED DISORDER

REACTIONS (3)
  - CONSTIPATION [None]
  - DEHYDRATION [None]
  - DIARRHOEA [None]
